FAERS Safety Report 18547639 (Version 2)
Quarter: 2020Q4

REPORT INFORMATION
  Report Type: Report from Study
  Country: US (occurrence: US)
  Receive Date: 20201125
  Receipt Date: 20201217
  Transmission Date: 20210114
  Serious: Yes (Hospitalization)
  Sender: FDA-Public Use
  Company Number: US-ALKERMES INC.-ALK-2020-005245

PATIENT
  Age: 68 Year
  Sex: Male
  Weight: 106 kg

DRUGS (36)
  1. BLINDED BUPRENORPHINE [Suspect]
     Active Substance: BUPRENORPHINE
     Indication: ALCOHOL USE DISORDER
     Dosage: UNK UNK, QMO
     Route: 030
     Dates: start: 20201022
  2. VIVITROL [Suspect]
     Active Substance: NALTREXONE
     Indication: ALCOHOL USE DISORDER
     Dosage: UNK UNK, QMO
     Route: 030
     Dates: start: 20201022
  3. VIVITROL [Suspect]
     Active Substance: NALTREXONE
     Indication: ALCOHOL USE DISORDER
     Dosage: UNK UNK, QMO
     Route: 030
     Dates: start: 20201022
  4. PLACEBO [Suspect]
     Active Substance: UNSPECIFIED INGREDIENT
     Indication: POST-TRAUMATIC STRESS DISORDER
  5. ALBUTEROL. [Concomitant]
     Active Substance: ALBUTEROL
     Indication: CHRONIC OBSTRUCTIVE PULMONARY DISEASE
     Dosage: 900 MICROGRAM, 2 PUFFS EVERY 4 HOURS, PRN
  6. ALLOPURINOL. [Concomitant]
     Active Substance: ALLOPURINOL
     Indication: GOUT
     Dosage: 100 MICROGRAM, QD
     Route: 048
  7. CARVEDILOL. [Concomitant]
     Active Substance: CARVEDILOL
     Indication: BLOOD PRESSURE MEASUREMENT
  8. FUROSEMIDE. [Concomitant]
     Active Substance: FUROSEMIDE
     Indication: CARDIAC FAILURE
     Dosage: 80 MILLIGRAM, QD
     Route: 048
  9. APIXABAN [Concomitant]
     Active Substance: APIXABAN
     Indication: ATRIAL FIBRILLATION
     Dosage: 5 MICROGRAM, QD
     Route: 048
  10. METHOCARBAMOL. [Concomitant]
     Active Substance: METHOCARBAMOL
     Indication: MUSCLE SPASMS
     Dosage: 750 MILLIGRAM, TID
  11. PLACEBO [Suspect]
     Active Substance: UNSPECIFIED INGREDIENT
     Indication: POST-TRAUMATIC STRESS DISORDER
  12. BUPRENORPHINE. [Concomitant]
     Active Substance: BUPRENORPHINE
     Indication: ALCOHOL USE DISORDER
     Dosage: 2 MILLIGRAM
     Route: 060
     Dates: start: 20201022
  13. MULTIVITAMIN [ASCORBIC ACID;COLECALCIFEROL;NICOTINAMIDE;PYRIDOXINE HYD [Concomitant]
     Indication: CHRONIC KIDNEY DISEASE
     Dosage: 1 TABLET, QD
     Route: 048
  14. MULTIVITAMIN [ASCORBIC ACID;COLECALCIFEROL;NICOTINAMIDE;PYRIDOXINE HYD [Concomitant]
     Indication: NUTRITIONAL SUPPLEMENTATION
  15. PLACEBO [Suspect]
     Active Substance: UNSPECIFIED INGREDIENT
     Indication: ALCOHOL USE DISORDER
     Dosage: UNK UNK, QMO
     Route: 030
     Dates: start: 20201022
  16. BUSPIRONE [Concomitant]
     Active Substance: BUSPIRONE HYDROCHLORIDE
     Indication: ANXIETY
     Dosage: 10 MILLIGRAM, TID
     Route: 048
  17. CARVEDILOL. [Concomitant]
     Active Substance: CARVEDILOL
     Indication: HEART RATE
     Dosage: 6.25 MICROGRAM, HALF TABLET,  BID
     Route: 048
  18. VIVITROL [Suspect]
     Active Substance: NALTREXONE
     Indication: POST-TRAUMATIC STRESS DISORDER
  19. BUDESONIDE;FORMOTEROL [Concomitant]
     Active Substance: BUDESONIDE\FORMOTEROL
     Indication: CHRONIC OBSTRUCTIVE PULMONARY DISEASE
     Dosage: 120 DAYS 2 PUFFS
  20. GLECAPREVIR;PIBRENTASVIR [Concomitant]
     Active Substance: GLECAPREVIR\PIBRENTASVIR
     Indication: HEPATITIS C
     Dosage: 3 TABLETS QD
     Route: 048
  21. LIDOCAINE. [Concomitant]
     Active Substance: LIDOCAINE
     Indication: PAIN
     Dosage: PATCH TO SKIN,, Q12H, QD
  22. SENNOSIDES. [Concomitant]
     Active Substance: SENNOSIDES
     Indication: CONSTIPATION
     Dosage: 8.6 MILLIGRAM, QD
     Route: 048
  23. PLACEBO [Suspect]
     Active Substance: UNSPECIFIED INGREDIENT
     Indication: ALCOHOL USE DISORDER
     Dosage: UNK UNK, QMO
     Route: 030
     Dates: start: 20201022
  24. ASPIRIN. [Concomitant]
     Active Substance: ASPIRIN
     Indication: CARDIAC FAILURE CONGESTIVE
     Dosage: 81 MICROGRAM, EC
  25. ISOSORBIDE DINITRATE. [Concomitant]
     Active Substance: ISOSORBIDE DINITRATE
     Indication: CARDIAC DISORDER
     Dosage: 20 MILLIGRAM, ONE-HALF TABLET, BID
     Route: 048
  26. BLINDED BUPRENORPHINE [Suspect]
     Active Substance: BUPRENORPHINE
     Indication: POST-TRAUMATIC STRESS DISORDER
  27. ACETAMINOPHEN. [Concomitant]
     Active Substance: ACETAMINOPHEN
     Indication: PAIN
     Dosage: UNK TAB, BID
     Route: 048
  28. FERROUS SULFATE. [Concomitant]
     Active Substance: FERROUS SULFATE
     Indication: BLOOD IRON DECREASED
     Dosage: 1 TABLET ON MONDAYS, WEDNESDAYS, AND FRIDAYS
     Route: 048
  29. LOSARTAN. [Concomitant]
     Active Substance: LOSARTAN
     Indication: CARDIAC DISORDER
     Dosage: 50 MILLIGRAM, QD
     Route: 048
  30. LOSARTAN. [Concomitant]
     Active Substance: LOSARTAN
     Indication: BLOOD PRESSURE MEASUREMENT
  31. SPIRONOLACTONE. [Concomitant]
     Active Substance: SPIRONOLACTONE
     Indication: BLOOD PRESSURE MEASUREMENT
     Dosage: 25 MILLIGRAM, QD
     Route: 048
  32. TIOTROPIUM BROMIDE [Concomitant]
     Active Substance: TIOTROPIUM BROMIDE
     Indication: CHRONIC OBSTRUCTIVE PULMONARY DISEASE
     Dosage: 18 MICROGRAM
  33. VIVITROL [Suspect]
     Active Substance: NALTREXONE
     Indication: POST-TRAUMATIC STRESS DISORDER
  34. BUPRENORPHINE. [Concomitant]
     Active Substance: BUPRENORPHINE
     Indication: POST-TRAUMATIC STRESS DISORDER
  35. DOCUSATE SODIUM. [Concomitant]
     Active Substance: DOCUSATE SODIUM
     Indication: FAECES HARD
     Dosage: 250 MILLIGRAM, QD
     Route: 048
  36. PRAVASTATIN NA [Concomitant]
     Active Substance: PRAVASTATIN SODIUM
     Indication: BLOOD CHOLESTEROL
     Dosage: 40 MILLIGRAM,ONE HALF TABLET, HS
     Route: 048

REACTIONS (1)
  - Cardiac failure congestive [Recovered/Resolved]

NARRATIVE: CASE EVENT DATE: 20201113
